FAERS Safety Report 9393013 (Version 1)
Quarter: 2013Q3

REPORT INFORMATION
  Report Type: Report from Study
  Country: US (occurrence: US)
  Receive Date: 20130710
  Receipt Date: 20130710
  Transmission Date: 20140515
  Serious: Yes (Death)
  Sender: FDA-Public Use
  Company Number: PHEH2013US014502

PATIENT
  Sex: Male

DRUGS (1)
  1. TOBI [Suspect]
     Indication: CHRONIC LYMPHOCYTIC LEUKAEMIA
     Dosage: 300 MG, ONE AMPOULE EVERY 12 HOURS ON MONDAY, WEDNESDAY AND FRIDAYS
     Dates: start: 20121129

REACTIONS (1)
  - Death [Fatal]
